FAERS Safety Report 7794446-1 (Version None)
Quarter: 2011Q4

REPORT INFORMATION
  Report Type: 
  Country: None (occurrence: None)
  Receive Date: 20111004
  Receipt Date: 20110929
  Transmission Date: 20120403
  Serious: Yes (Hospitalization)
  Sender: FDA-Public Use
  Company Number: SE-BRISTOL-MYERS SQUIBB COMPANY-16117764

PATIENT
  Age: 68 Year
  Sex: Male

DRUGS (12)
  1. LYRICA [Concomitant]
  2. METOPROLOL TARTRATE [Concomitant]
  3. RAMIPRIL [Concomitant]
  4. SIMVASTATIN [Concomitant]
  5. ACETAMINOPHEN W/ CODEINE [Concomitant]
  6. HYDREA [Suspect]
     Indication: ESSENTIAL THROMBOCYTHAEMIA
     Route: 048
     Dates: start: 20090824, end: 20110829
  7. ASPIRIN [Concomitant]
  8. CALCIUM CARBONATE [Concomitant]
  9. NEXIUM [Concomitant]
  10. ALENDRONIC ACID [Concomitant]
  11. FUROSEMIDE [Concomitant]
  12. ACETYLCYSTEINE [Concomitant]

REACTIONS (1)
  - ALVEOLITIS [None]
